FAERS Safety Report 5282367-8 (Version None)
Quarter: 2007Q1

REPORT INFORMATION
  Report Type: 
  Country: None (occurrence: None)
  Receive Date: 20070326
  Receipt Date: 20070312
  Transmission Date: 20070707
  Serious: Yes (Other)
  Sender: FDA-Public Use
  Company Number: 07-000571

PATIENT

DRUGS (1)
  1. ERYC [Suspect]
     Dosage: UNK, QD, ORAL
     Route: 048

REACTIONS (3)
  - DEAFNESS [None]
  - HYPOACUSIS [None]
  - TINNITUS [None]
